FAERS Safety Report 9691359 (Version 6)
Quarter: 2014Q2

REPORT INFORMATION
  Report Type: Spontaneous
  Country: US (occurrence: US)
  Receive Date: 20131115
  Receipt Date: 20140523
  Transmission Date: 20141212
  Serious: Yes (Other)
  Sender: FDA-Public Use
  Company Number: US-PFIZER INC-2013326842

PATIENT
  Age: 64 Year
  Sex: Female
  Weight: 74.83 kg

DRUGS (5)
  1. LYRICA [Suspect]
     Indication: NEUROPATHY PERIPHERAL
     Dosage: 200 MG, 2X/DAY
  2. LYRICA [Suspect]
     Dosage: 200 MG, 3X/DAY
  3. LYRICA [Suspect]
     Dosage: 300 MG, UNK
  4. LYRICA [Suspect]
     Dosage: 75 MG, UNK
  5. HUMULIN 70/30 [Concomitant]
     Indication: BLOOD GLUCOSE ABNORMAL
     Dosage: 70 IU, 2X/DAY

REACTIONS (7)
  - Diabetes mellitus [Unknown]
  - Pruritus [Unknown]
  - Weight decreased [Unknown]
  - Middle insomnia [Unknown]
  - Pain [Unknown]
  - Dysstasia [Unknown]
  - Intentional product misuse [Unknown]
